FAERS Safety Report 9409326 (Version 1)
Quarter: 2013Q3

REPORT INFORMATION
  Report Type: Spontaneous
  Country: US (occurrence: US)
  Receive Date: 20130719
  Receipt Date: 20130719
  Transmission Date: 20140515
  Serious: No
  Sender: FDA-Public Use
  Company Number: US-PFIZER INC-2013211879

PATIENT
  Age: 37 Year
  Sex: Male
  Weight: 90.7 kg

DRUGS (2)
  1. EFFEXOR [Suspect]
     Indication: ANXIETY
     Dosage: 150 MG (TWO 75MG TABLETS), DAILY
     Route: 048
     Dates: start: 2013
  2. EFFEXOR [Suspect]
     Indication: DEPRESSION

REACTIONS (3)
  - False positive investigation result [Unknown]
  - Rash [Recovered/Resolved]
  - Pruritus [Recovered/Resolved]
